FAERS Safety Report 6717311-7 (Version None)
Quarter: 2010Q2

REPORT INFORMATION
  Report Type: 
  Country: None (occurrence: None)
  Receive Date: 20100510
  Receipt Date: 20100503
  Transmission Date: 20101027
  Serious: No
  Sender: FDA-Public Use
  Company Number: US-JNJFOC-20100501080

PATIENT
  Sex: Male
  Weight: 63.5 kg

DRUGS (8)
  1. DURAGESIC-100 [Suspect]
     Indication: PAIN
     Route: 062
  2. DURAGESIC-100 [Suspect]
     Route: 062
  3. DURAGESIC-100 [Suspect]
     Route: 062
  4. AMBIEN [Concomitant]
     Indication: SLEEP DISORDER
     Route: 048
  5. KLONOPIN [Concomitant]
     Indication: DEPRESSION
     Route: 048
  6. CREON [Concomitant]
     Indication: DYSPEPSIA
     Dosage: 10 TWO EACH WITH MEAL
     Route: 048
  7. EFFEXOR [Concomitant]
     Indication: DEPRESSION
     Route: 048
  8. SECTRAL [Concomitant]
     Indication: HYPERTENSION
     Route: 048

REACTIONS (2)
  - INCORRECT DRUG ADMINISTRATION RATE [None]
  - PAIN [None]
